FAERS Safety Report 9307002 (Version 2)
Quarter: 2013Q3

REPORT INFORMATION
  Report Type: Spontaneous
  Country: AU (occurrence: AU)
  Receive Date: 20130523
  Receipt Date: 20130701
  Transmission Date: 20140515
  Serious: Yes (Other)
  Sender: FDA-Public Use
  Company Number: AU-009507513-1305AUS010181

PATIENT
  Age: 61 Year
  Sex: Female

DRUGS (6)
  1. VICTRELIS 200 MG [Suspect]
     Indication: HEPATITIS C
     Dosage: 800 MG, TID
     Route: 048
     Dates: start: 201207
  2. COPEGUS [Suspect]
     Indication: HEPATITIS C
     Dosage: 400 MG, QD
     Route: 048
     Dates: start: 2011
  3. COPEGUS [Suspect]
     Dosage: 600 MG, QD
     Route: 048
     Dates: start: 2011
  4. PEGASYS [Suspect]
     Indication: HEPATITIS C
     Dosage: UNK UNK, QD
     Dates: start: 2011
  5. PEGASYS [Suspect]
     Dosage: 135 MICROGRAM, QD
  6. OXYNORM [Concomitant]
     Dosage: UNK

REACTIONS (8)
  - Hepatocellular carcinoma [Unknown]
  - Liver transplant [Unknown]
  - Platelet disorder [Unknown]
  - Pancytopenia [Unknown]
  - Lethargy [Unknown]
  - Treatment failure [Unknown]
  - Depression [Unknown]
  - Anxiety [Unknown]
